FAERS Safety Report 13140521 (Version 2)
Quarter: 2017Q1

REPORT INFORMATION
  Report Type: Spontaneous
  Country: US (occurrence: US)
  Receive Date: 20170123
  Receipt Date: 20170223
  Transmission Date: 20170428
  Serious: No
  Sender: FDA-Public Use
  Company Number: PHEH2017US001465

PATIENT
  Sex: Female

DRUGS (1)
  1. VIVELLE-DOT [Suspect]
     Active Substance: ESTRADIOL
     Indication: MENOPAUSE
     Dosage: 0.075 MG, UNK
     Route: 062

REACTIONS (4)
  - Malaise [Unknown]
  - Product quality issue [Unknown]
  - Depression [Unknown]
  - Vaginal disorder [Unknown]
